FAERS Safety Report 9237994 (Version 2)
Quarter: 2013Q2

REPORT INFORMATION
  Report Type: Spontaneous
  Country: US (occurrence: US)
  Receive Date: 20130418
  Receipt Date: 20130509
  Transmission Date: 20140414
  Serious: No
  Sender: FDA-Public Use
  Company Number: US-009507513-1304USA007799

PATIENT
  Sex: Male

DRUGS (4)
  1. PROPECIA [Suspect]
     Dosage: UNK
     Dates: end: 201301
  2. ZOSTAVAX [Suspect]
     Indication: PROPHYLAXIS
     Dosage: .65 ML
     Dates: start: 20130114, end: 20130114
  3. TAMSULOSIN HYDROCHLORIDE [Concomitant]
     Dosage: UNK
  4. CRESTOR [Concomitant]
     Dosage: UNK

REACTIONS (5)
  - Psoriasis [Not Recovered/Not Resolved]
  - Nipple pain [Not Recovered/Not Resolved]
  - Breast pain [Not Recovered/Not Resolved]
  - Breast enlargement [Unknown]
  - Breast tenderness [Not Recovered/Not Resolved]
